FAERS Safety Report 10706717 (Version 1)
Quarter: 2015Q1

REPORT INFORMATION
  Report Type: Spontaneous
  Country: US (occurrence: None)
  Receive Date: 20150109
  Receipt Date: 20150109
  Transmission Date: 20150721
  Serious: Yes (Disabling)
  Sender: FDA-Public Use
  Company Number: None

PATIENT
  Age: 68 Year
  Sex: Male
  Weight: 83.92 kg

DRUGS (2)
  1. BENZONATATE. [Suspect]
     Active Substance: BENZONATATE
     Indication: PHARYNGEAL DISORDER
     Dosage: 1 PILL  THREE TIMES DAILY TAKEN BY MOUTH
     Route: 048
     Dates: start: 20141209, end: 20141212
  2. BENZONATATE. [Suspect]
     Active Substance: BENZONATATE
     Indication: CONDITION AGGRAVATED
     Dosage: 1 PILL  THREE TIMES DAILY TAKEN BY MOUTH
     Route: 048
     Dates: start: 20141209, end: 20141212

REACTIONS (1)
  - Tinnitus [None]

NARRATIVE: CASE EVENT DATE: 20141212
